FAERS Safety Report 8024290-1 (Version None)
Quarter: 2012Q1

REPORT INFORMATION
  Report Type: 
  Country: None (occurrence: None)
  Receive Date: 20120105
  Receipt Date: 20111227
  Transmission Date: 20120608
  Serious: Yes (Death, Hospitalization)
  Sender: FDA-Public Use
  Company Number: FR-MUTUAL PHARMACEUTICAL COMPANY, INC.-CLHC20110053

PATIENT
  Age: 75 Year
  Sex: Female

DRUGS (10)
  1. COLCHICINE [Suspect]
     Route: 065
  2. LASIX [Concomitant]
     Indication: PRODUCT USED FOR UNKNOWN INDICATION
     Route: 065
  3. PYOSTACINE (PRISTINAMYCINE) [Suspect]
     Indication: ERYSIPELAS
     Route: 065
  4. XANAX [Concomitant]
     Indication: PRODUCT USED FOR UNKNOWN INDICATION
     Route: 065
  5. NEXIUM [Concomitant]
     Indication: PRODUCT USED FOR UNKNOWN INDICATION
     Route: 065
  6. DIGOXIN [Concomitant]
     Indication: PRODUCT USED FOR UNKNOWN INDICATION
     Route: 065
  7. PROZAC [Concomitant]
     Indication: PRODUCT USED FOR UNKNOWN INDICATION
     Route: 065
  8. COLCHICINE [Suspect]
     Indication: PERICARDIAL EFFUSION
     Route: 065
  9. COLCHICINE [Suspect]
     Route: 065
  10. BISOPROLOL FUMARATE [Concomitant]
     Indication: PRODUCT USED FOR UNKNOWN INDICATION
     Route: 065

REACTIONS (9)
  - LACTIC ACIDOSIS [None]
  - TROPONIN I INCREASED [None]
  - DELIRIUM [None]
  - DRUG INTERACTION [None]
  - PANCYTOPENIA [None]
  - AGITATION [None]
  - MULTI-ORGAN FAILURE [None]
  - SHOCK [None]
  - OVERDOSE [None]
